FAERS Safety Report 10552975 (Version 2)
Quarter: 2015Q1

REPORT INFORMATION
  Report Type: Spontaneous
  Country: US (occurrence: US)
  Receive Date: 20141029
  Receipt Date: 20150204
  Transmission Date: 20150720
  Serious: Yes (Other)
  Sender: FDA-Public Use
  Company Number: US-PFIZER INC-2014298511

PATIENT
  Age: 55 Year
  Sex: Male
  Weight: 82 kg

DRUGS (4)
  1. LYRICA [Suspect]
     Active Substance: PREGABALIN
     Indication: NEURALGIA
     Dosage: 150 MG, 3X/DAY
     Route: 048
  2. FENTANYL. [Concomitant]
     Active Substance: FENTANYL
     Dosage: 75 MG, UNK (TO BE CHANGED EVERY 3 DAYS)
  3. LYRICA [Suspect]
     Active Substance: PREGABALIN
     Indication: NERVE INJURY
  4. HYDROCODONE [Concomitant]
     Active Substance: HYDROCODONE
     Dosage: 1 DF (ONE PILL),4X/DAY

REACTIONS (5)
  - Cerebrovascular accident [Unknown]
  - Pain in extremity [Unknown]
  - Brain neoplasm [Unknown]
  - Paraesthesia [Unknown]
  - Tremor [Unknown]
